FAERS Safety Report 8958509 (Version 1)
Quarter: 2012Q4

REPORT INFORMATION
  Report Type: Spontaneous
  Country: US (occurrence: None)
  Receive Date: 20121205
  Receipt Date: 20121205
  Transmission Date: 20130627
  Serious: No
  Sender: FDA-Public Use
  Company Number: None

PATIENT
  Age: 55 Year
  Sex: Female
  Weight: 81.65 kg

DRUGS (1)
  1. DIGOXIN 0.125 MG [Suspect]
     Indication: ATRIAL FIBRILLATION
     Dosage: three (3) tablets once daily oral
     Route: 048
     Dates: start: 20111017, end: 20120801

REACTIONS (2)
  - Palpitations [None]
  - Tachycardia [None]
